FAERS Safety Report 25374742 (Version 2)
Quarter: 2025Q2

REPORT INFORMATION
  Report Type: Spontaneous
  Country: US (occurrence: US)
  Receive Date: 20250529
  Receipt Date: 20250616
  Transmission Date: 20250717
  Serious: No
  Sender: AMGEN
  Company Number: US-AMGEN-USASP2025103270

PATIENT
  Age: 87 Year
  Sex: Male
  Weight: 92.5 kg

DRUGS (2)
  1. NEULASTA [Suspect]
     Active Substance: PEGFILGRASTIM
     Indication: Neutropenia
     Route: 065
  2. NEULASTA [Suspect]
     Active Substance: PEGFILGRASTIM
     Route: 065

REACTIONS (1)
  - Device malfunction [Unknown]

NARRATIVE: CASE EVENT DATE: 20250523
